FAERS Safety Report 6011043-9 (Version None)
Quarter: 2008Q4

REPORT INFORMATION
  Report Type: 
  Country: None (occurrence: None)
  Receive Date: 20081218
  Receipt Date: 20081206
  Transmission Date: 20090506
  Serious: Yes (Hospitalization)
  Sender: FDA-Public Use
  Company Number: CA-PFIZER INC-2008090216

PATIENT

DRUGS (1)
  1. DILANTIN [Suspect]
     Route: 048

REACTIONS (1)
  - ANTICONVULSANT DRUG LEVEL DECREASED [None]
